FAERS Safety Report 8417181-5 (Version None)
Quarter: 2012Q2

REPORT INFORMATION
  Report Type: 
  Country: None (occurrence: None)
  Receive Date: 20120606
  Receipt Date: 20120601
  Transmission Date: 20120825
  Serious: Yes (Hospitalization)
  Sender: FDA-Public Use
  Company Number: US-PFIZER INC-2012125696

PATIENT
  Sex: Female
  Weight: 56.236 kg

DRUGS (16)
  1. NORPACE [Suspect]
     Indication: ATRIAL FIBRILLATION
     Dosage: 150 MG, UNK
     Route: 048
  2. NORPACE [Suspect]
     Dosage: 150 MG, 2X/DAY
     Route: 048
  3. PRILOSEC [Concomitant]
     Dosage: UNK, DAILY
  4. CARDIZEM [Concomitant]
     Dosage: 120 MG, UNK
  5. NORPACE [Suspect]
     Dosage: UNK
     Route: 048
  6. NORPACE [Suspect]
     Dosage: 100 MG, UNK
     Route: 048
  7. AMIODARONE HCL [Suspect]
     Dosage: UNK
  8. DRONEDARONE HCL [Suspect]
     Indication: ATRIAL FIBRILLATION
     Dosage: UNK
     Dates: start: 20090101
  9. COENZYME Q10 [Concomitant]
     Dosage: UNK
  10. CALCITONIN [Concomitant]
     Dosage: UNK
  11. COZAAR [Suspect]
     Dosage: UNK
  12. LEVOTHYROXINE [Concomitant]
     Dosage: UNK, DAILY
  13. NORPACE [Suspect]
     Dosage: 150 MG, 2X/DAY
     Route: 048
  14. COZAAR [Suspect]
     Dosage: 50 MG, UNK
  15. PRADAXA [Concomitant]
     Dosage: UNK
  16. PLAVIX [Concomitant]
     Dosage: 75 MG, UNK

REACTIONS (8)
  - FEMUR FRACTURE [None]
  - BLOOD CHOLESTEROL INCREASED [None]
  - SPINAL FRACTURE [None]
  - FALL [None]
  - DRY MOUTH [None]
  - PAIN [None]
  - HIP FRACTURE [None]
  - ANAEMIA [None]
